FAERS Safety Report 18643582 (Version 1)
Quarter: 2020Q4

REPORT INFORMATION
  Report Type: Spontaneous
  Country: US (occurrence: US)
  Receive Date: 20201221
  Receipt Date: 20201221
  Transmission Date: 20210114
  Serious: No
  Sender: FDA-Public Use
  Company Number: US-ELI_LILLY_AND_COMPANY-US202012007827

PATIENT
  Age: 75 Year
  Sex: Female

DRUGS (1)
  1. FORTEO [Suspect]
     Active Substance: TERIPARATIDE
     Indication: PRODUCT USED FOR UNKNOWN INDICATION
     Dosage: UNK UNK, UNKNOWN
     Route: 065
     Dates: start: 20201210

REACTIONS (7)
  - Feeling abnormal [Not Recovered/Not Resolved]
  - Injury associated with device [Unknown]
  - Abdominal distension [Unknown]
  - Injection site pain [Not Recovered/Not Resolved]
  - Weight increased [Unknown]
  - Fat tissue increased [Unknown]
  - Underdose [Unknown]

NARRATIVE: CASE EVENT DATE: 20201214
